FAERS Safety Report 9711492 (Version 2)
Quarter: 2013Q4

REPORT INFORMATION
  Report Type: Spontaneous
  Country: US (occurrence: US)
  Receive Date: 20131126
  Receipt Date: 20131126
  Transmission Date: 20140711
  Serious: No
  Sender: FDA-Public Use
  Company Number: US-BRISTOL-MYERS SQUIBB COMPANY-18762054

PATIENT
  Age: 66 Year
  Sex: Female
  Weight: 82.54 kg

DRUGS (2)
  1. BYDUREON [Suspect]
     Indication: TYPE 2 DIABETES MELLITUS
     Dosage: INJECTION?PRESCRIPTION:7800430
     Route: 058
     Dates: start: 2013
  2. GLIMEPIRIDE [Concomitant]
     Indication: DIABETES MELLITUS

REACTIONS (4)
  - Injection site haemorrhage [Recovered/Resolved]
  - Injection site pain [Not Recovered/Not Resolved]
  - Injection site mass [Recovering/Resolving]
  - Injection site pruritus [Not Recovered/Not Resolved]
